FAERS Safety Report 6021978-9 (Version None)
Quarter: 2008Q4

REPORT INFORMATION
  Report Type: 
  Country: None (occurrence: None)
  Receive Date: 20081229
  Receipt Date: 20081223
  Transmission Date: 20090506
  Serious: Yes (Death)
  Sender: FDA-Public Use
  Company Number: US-ASTRAZENECA-2008AC03406

PATIENT
  Age: 42 Year
  Sex: Female

DRUGS (7)
  1. ACETAMINOPHEN [Suspect]
     Route: 048
  2. LISINOPRIL [Suspect]
     Route: 048
  3. AMITRIPTYLINE [Suspect]
     Route: 048
  4. SERTRALINE [Suspect]
  5. TRAMADOL [Suspect]
  6. ALPRAZOLAM [Suspect]
  7. UNKNOWN SUBSTANCE [Suspect]

REACTIONS (1)
  - COMPLETED SUICIDE [None]
